FAERS Safety Report 16109402 (Version 1)
Quarter: 2019Q1

REPORT INFORMATION
  Report Type: Spontaneous
  Country: PT (occurrence: PT)
  Receive Date: 20190324
  Receipt Date: 20190324
  Transmission Date: 20190418
  Serious: Yes (Other)
  Sender: FDA-Public Use
  Company Number: PHHY2019PT064450

PATIENT
  Age: 12 Month
  Sex: Male

DRUGS (1)
  1. CEFTRIAXONE. [Suspect]
     Active Substance: CEFTRIAXONE
     Indication: PROPHYLAXIS
     Dosage: 85 MG/KG, QD
     Route: 065

REACTIONS (1)
  - Cholelithiasis [Recovered/Resolved]
